FAERS Safety Report 25613946 (Version 2)
Quarter: 2025Q4

REPORT INFORMATION
  Report Type: Spontaneous
  Country: US (occurrence: US)
  Receive Date: 20250728
  Receipt Date: 20251225
  Transmission Date: 20260118
  Serious: Yes (Hospitalization, Other)
  Sender: SANOFI AVENTIS
  Company Number: US-SA-2025SA212305

PATIENT
  Age: 43 Year
  Sex: Male

DRUGS (3)
  1. ALTUVIIIO [Suspect]
     Active Substance: EFANESOCTOCOG ALFA
     Indication: Factor VIII deficiency
     Dosage: 4,300 UNITS (3870-4730) EVERY 7 DAYS
     Route: 042
     Dates: start: 202502
  2. ALTUVIIIO [Suspect]
     Active Substance: EFANESOCTOCOG ALFA
     Dosage: 4,300 UNITS (3870-4730) EVERY 48 HOURS AS NEEDED FOR BLEEDS OR PROCEDURES
     Route: 042
  3. SODIUM CHLORIDE [Concomitant]
     Active Substance: SODIUM CHLORIDE
     Dosage: 5 ML FLUSH

REACTIONS (8)
  - Rectal haemorrhage [Unknown]
  - Muscle haemorrhage [Unknown]
  - Post procedural haemorrhage [Unknown]
  - Tongue biting [Unknown]
  - Traumatic haemorrhage [Recovering/Resolving]
  - Arthropathy [Unknown]
  - Myalgia [Unknown]
  - Ankle operation [Unknown]

NARRATIVE: CASE EVENT DATE: 20250101
